FAERS Safety Report 5895040-X (Version None)
Quarter: 2008Q3

REPORT INFORMATION
  Report Type: 
  Country: None (occurrence: None)
  Receive Date: 20080924
  Receipt Date: 20080915
  Transmission Date: 20090109
  Serious: Yes (Hospitalization, Other)
  Sender: FDA-Public Use
  Company Number: US-JNJFOC-20080903631

PATIENT
  Age: 3 Year
  Sex: Female
  Weight: 16.9 kg

DRUGS (5)
  1. REMICADE [Suspect]
     Indication: JUVENILE ARTHRITIS
     Dosage: THERAPY INITIATED 3.5 MONTHS AGO
     Route: 042
  2. METHOTREXATE [Suspect]
     Indication: JUVENILE ARTHRITIS
     Route: 058
  3. NAPROXEN [Concomitant]
  4. FOLIC ACID [Concomitant]
  5. METHYLPREDNISOLONE [Concomitant]
     Route: 042

REACTIONS (3)
  - CELLULITIS [None]
  - LYMPHADENITIS [None]
  - VARICELLA [None]
